FAERS Safety Report 5828500-8 (Version None)
Quarter: 2008Q3

REPORT INFORMATION
  Report Type: 
  Country: None (occurrence: None)
  Receive Date: 20080731
  Receipt Date: 20080723
  Transmission Date: 20090109
  Serious: Yes (Other)
  Sender: FDA-Public Use
  Company Number: CA-JNJFOC-20080705801

PATIENT
  Sex: Male

DRUGS (1)
  1. FLOXIN [Suspect]
     Indication: SEPSIS
     Route: 065

REACTIONS (3)
  - BURNING SENSATION [None]
  - INSOMNIA [None]
  - PAINFUL ERECTION [None]
